FAERS Safety Report 6653428-3 (Version None)
Quarter: 2010Q1

REPORT INFORMATION
  Report Type: 
  Country: None (occurrence: None)
  Receive Date: 20100326
  Receipt Date: 20100317
  Transmission Date: 20100710
  Serious: Yes (Other)
  Sender: FDA-Public Use
  Company Number: RO-ABBOTT-10P-135-0623849-00

PATIENT
  Sex: Male
  Weight: 77 kg

DRUGS (5)
  1. HUMIRA [Suspect]
     Indication: ANKYLOSING SPONDYLITIS
     Route: 058
     Dates: start: 20090813, end: 20100129
  2. ISONIAZID [Suspect]
     Indication: ANTIBIOTIC PROPHYLAXIS
     Dosage: 300 MG DAILY
     Dates: start: 20090601, end: 20091101
  3. SULFASALAZINE [Suspect]
     Indication: ANKYLOSING SPONDYLITIS
     Dosage: 1 GRAM DAILY
     Route: 048
     Dates: start: 20091123, end: 20091217
  4. SULFASALAZINE [Suspect]
     Dosage: 2 GRAM DAILY
     Dates: start: 20090301, end: 20091123
  5. LAGOSA [Concomitant]
     Indication: HEPATITIS B
     Dates: start: 20091201

REACTIONS (3)
  - ABDOMINAL PAIN UPPER [None]
  - ASTHENIA [None]
  - HEPATITIS B [None]
